FAERS Safety Report 11829589 (Version 2)
Quarter: 2015Q4

REPORT INFORMATION
  Report Type: Spontaneous
  Country: JP (occurrence: JP)
  Receive Date: 20151212
  Receipt Date: 20151215
  Transmission Date: 20160305
  Serious: Yes (Hospitalization, Other)
  Sender: FDA-Public Use
  Company Number: JP-ASTRAZENECA-2015SF22929

PATIENT
  Age: 44 Year
  Sex: Female

DRUGS (6)
  1. NAIXAN [Concomitant]
     Active Substance: NAPROXEN SODIUM
     Indication: MIGRAINE
     Dosage: 2 TABLETS 4 TIMES WEEKLY FOR ABOUT A YEAR
     Route: 048
  2. BRUFEN [Concomitant]
     Active Substance: IBUPROFEN
  3. MAXALT [Concomitant]
     Active Substance: RIZATRIPTAN BENZOATE
  4. SELENICA-R [Concomitant]
     Active Substance: VALPROATE SODIUM
  5. VALTREX [Concomitant]
     Active Substance: VALACYCLOVIR HYDROCHLORIDE
     Indication: HERPES ZOSTER
  6. ZOMIG [Suspect]
     Active Substance: ZOLMITRIPTAN
     Indication: MIGRAINE
     Dosage: 2 TABLETS 4 TIMES WEEKLY  FOR ABOUT A YEAR
     Route: 048

REACTIONS (2)
  - Medication overuse headache [Unknown]
  - Vertebral artery dissection [Recovered/Resolved]
